FAERS Safety Report 5182945-0 (Version None)
Quarter: 2006Q4

REPORT INFORMATION
  Report Type: 
  Country: None (occurrence: None)
  Receive Date: 20061212
  Receipt Date: 20061205
  Transmission Date: 20070319
  Serious: Yes (Other)
  Sender: FDA-Public Use
  Company Number: 2006145413

PATIENT
  Age: 60 Year
  Sex: Female
  Weight: 68.0396 kg

DRUGS (13)
  1. NARDIL [Suspect]
     Indication: MAJOR DEPRESSION
     Dosage: 90 MG (30 MG, 30 MG, 3 IN 1 D)
     Dates: start: 19860101
  2. LEVOXYL [Concomitant]
  3. ASPIRIN [Concomitant]
  4. XALCOM [Concomitant]
  5. XALATAN [Concomitant]
  6. PROVIGIL [Concomitant]
  7. VITAMIN C (VITAMIN C) [Concomitant]
  8. MULTIVITAMIN [Concomitant]
  9. CALCIUM (CALCIUM) [Concomitant]
  10. MACROGOL (MACROGOL) [Concomitant]
  11. AMOXICILLIN [Concomitant]
  12. MOTRIN [Concomitant]
  13. DETROL LA (TOLERODINE L-TARTRATE) [Concomitant]

REACTIONS (4)
  - DEPRESSION [None]
  - DRUG INEFFECTIVE [None]
  - SUICIDAL IDEATION [None]
  - THYROID FUNCTION TEST ABNORMAL [None]
